FAERS Safety Report 14672536 (Version 1)
Quarter: 2018Q1

REPORT INFORMATION
  Report Type: Spontaneous
  Country: US (occurrence: US)
  Receive Date: 20180322
  Receipt Date: 20180322
  Transmission Date: 20180509
  Serious: Yes (Life-Threatening, Hospitalization)
  Sender: FDA-Public Use
  Company Number: None

PATIENT
  Age: 50 Year
  Sex: Male
  Weight: 111.4 kg

DRUGS (1)
  1. TESTOSTERONE. [Suspect]
     Active Substance: TESTOSTERONE
     Indication: PRODUCT USED FOR UNKNOWN INDICATION
     Route: 030
     Dates: start: 20141204, end: 20180112

REACTIONS (8)
  - Syncope [None]
  - Immobile [None]
  - Pain in extremity [None]
  - Pulmonary embolism [None]
  - Deep vein thrombosis [None]
  - Dizziness [None]
  - Dyspnoea [None]
  - Middle insomnia [None]

NARRATIVE: CASE EVENT DATE: 20180112
